FAERS Safety Report 5120168-1 (Version None)
Quarter: 2006Q4

REPORT INFORMATION
  Report Type: 
  Country: None (occurrence: None)
  Receive Date: 20061002
  Receipt Date: 20061002
  Transmission Date: 20070319
  Serious: No
  Sender: FDA-Public Use
  Company Number: None

PATIENT
  Age: 77 Year
  Sex: Male

DRUGS (1)
  1. ROSUVASTATIN 10MG [Suspect]

REACTIONS (2)
  - DRUG EFFECT DECREASED [None]
  - MYALGIA [None]
